FAERS Safety Report 6067321-0 (Version None)
Quarter: 2009Q1

REPORT INFORMATION
  Report Type: 
  Country: None (occurrence: None)
  Receive Date: 20090204
  Receipt Date: 20090204
  Transmission Date: 20090719
  Serious: No
  Sender: FDA-Public Use
  Company Number: None

PATIENT
  Age: 77 Year
  Sex: Male

DRUGS (2)
  1. GLIPIZIDE [Suspect]
     Dosage: 20 MG BID  PO
     Route: 048
     Dates: start: 20070706, end: 20090124
  2. INSULIN [Suspect]
     Dosage: UNITS BID SQ
     Route: 058
     Dates: start: 20081022, end: 20090124

REACTIONS (4)
  - ASTHENIA [None]
  - FATIGUE [None]
  - HYPOGLYCAEMIA [None]
  - HYPOPHAGIA [None]
